FAERS Safety Report 16635586 (Version 1)
Quarter: 2019Q3

REPORT INFORMATION
  Report Type: Spontaneous
  Country: GB (occurrence: GB)
  Receive Date: 20190726
  Receipt Date: 20190726
  Transmission Date: 20191004
  Serious: Yes (Other)
  Sender: FDA-Public Use
  Company Number: GB-TEVA-2019-GB-1083938

PATIENT
  Age: 13 Year
  Sex: Male

DRUGS (1)
  1. MONTELUKAST [Suspect]
     Active Substance: MONTELUKAST SODIUM
     Indication: ASTHMA
     Dosage: 10 MILLIGRAM DAILY;

REACTIONS (5)
  - Hallucination, visual [Recovered/Resolved]
  - Intentional self-injury [Recovered/Resolved]
  - Violence-related symptom [Recovered/Resolved]
  - Paranoia [Recovered/Resolved]
  - Anxiety [Not Recovered/Not Resolved]
